FAERS Safety Report 7488073-3 (Version None)
Quarter: 2011Q2

REPORT INFORMATION
  Report Type: 
  Country: None (occurrence: None)
  Receive Date: 20110518
  Receipt Date: 20110513
  Transmission Date: 20111010
  Serious: Yes (Other)
  Sender: FDA-Public Use
  Company Number: US-PFIZER INC-2011103630

PATIENT
  Sex: Female

DRUGS (6)
  1. ZITHROMAX [Suspect]
     Indication: SINUSITIS
     Dosage: UNK DF, UNK
     Route: 048
     Dates: start: 20110108
  2. ZITHROMAX [Suspect]
     Dosage: UNK
     Dates: start: 20110422, end: 20110426
  3. ZITHROMAX [Suspect]
     Dosage: 2 DF, UNK
  4. ZITHROMAX [Suspect]
     Dosage: 1 DF, UNK
  5. LISINOPRIL [Concomitant]
     Indication: BLOOD PRESSURE MANAGEMENT
     Dosage: 20 MG, DAILY
  6. LIPITOR [Concomitant]
     Indication: LOW DENSITY LIPOPROTEIN INCREASED
     Dosage: 10 MG, DAILY
     Route: 048

REACTIONS (2)
  - ELECTROCARDIOGRAM ST SEGMENT DEPRESSION [None]
  - SINUS OPERATION [None]
